FAERS Safety Report 9429267 (Version 1)
Quarter: 2013Q3

REPORT INFORMATION
  Report Type: Spontaneous
  Country: CA (occurrence: CA)
  Receive Date: 20130730
  Receipt Date: 20130730
  Transmission Date: 20140515
  Serious: Yes (Hospitalization, Other)
  Sender: FDA-Public Use
  Company Number: CA-PFIZER INC-2013219696

PATIENT
  Age: 65 Year
  Sex: Female

DRUGS (6)
  1. PHENYTOIN [Suspect]
     Indication: CONVULSION PROPHYLAXIS
     Dosage: 300 MG, DAILY
     Route: 048
  2. PHENYTOIN [Interacting]
     Dosage: 450 MG, DAILY
     Route: 048
  3. PHENYTOIN [Interacting]
     Dosage: 200 MG AT BED TIME
     Route: 048
  4. SEPTRA DS [Interacting]
     Indication: URINARY TRACT INFECTION
     Dosage: 180 MG TRIMETHOPRIM AND 800 MG SULFAMETHOXAZOLE, BID
  5. DEXAMETHASONE [Concomitant]
     Indication: CONVULSION PROPHYLAXIS
     Dosage: UNK
  6. GEMCITABINE [Concomitant]
     Indication: LUNG NEOPLASM
     Dosage: UNK
     Dates: start: 200906

REACTIONS (3)
  - Drug interaction [Unknown]
  - Toxicity to various agents [Recovering/Resolving]
  - Toxic encephalopathy [Recovering/Resolving]
